FAERS Safety Report 6145054-X (Version None)
Quarter: 2009Q2

REPORT INFORMATION
  Report Type: 
  Country: None (occurrence: None)
  Receive Date: 20090401
  Receipt Date: 20090401
  Transmission Date: 20091009
  Serious: No
  Sender: FDA-Public Use
  Company Number: None

PATIENT
  Age: 53 Year
  Sex: Female
  Weight: 81.6475 kg

DRUGS (1)
  1. CYMBALTA [Suspect]
     Indication: FIBROMYALGIA
     Dosage: 30MG 1X DAY PO
     Route: 048
     Dates: start: 20090327, end: 20090327

REACTIONS (9)
  - DIZZINESS [None]
  - ILL-DEFINED DISORDER [None]
  - INSOMNIA [None]
  - MOVEMENT DISORDER [None]
  - MUSCLE CONTRACTIONS INVOLUNTARY [None]
  - MUSCLE RIGIDITY [None]
  - NAUSEA [None]
  - PALPITATIONS [None]
  - RETCHING [None]
